FAERS Safety Report 6388922-6 (Version None)
Quarter: 2009Q4

REPORT INFORMATION
  Report Type: 
  Country: None (occurrence: None)
  Receive Date: 20091001
  Receipt Date: 20090922
  Transmission Date: 20100525
  Serious: Yes (Hospitalization)
  Sender: FDA-Public Use
  Company Number: GXKR2009CH10592

PATIENT
  Age: 72 Year
  Sex: Female

DRUGS (6)
  1. ALENDRONIC ACID        (ALENDRONIC ACID) UNKNOWN [Suspect]
     Indication: OSTEOPOROSIS
     Dosage: 70 MG/WEEK, ORAL
     Route: 048
     Dates: start: 20090101, end: 20090601
  2. AMLODIPINE [Suspect]
     Dosage: UNK, ORAL
     Route: 048
     Dates: end: 20090601
  3. METOPROLOL             (METOPROLOL) [Concomitant]
  4. LISINOPRIL [Concomitant]
  5. LORAZEPAM [Concomitant]
  6. LANZOPRAZOL       (LANSOPRAZOLE) [Concomitant]

REACTIONS (7)
  - ATELECTASIS [None]
  - BILE DUCT OBSTRUCTION [None]
  - BREAST CANCER [None]
  - HEPATITIS CHOLESTATIC [None]
  - LARGE INTESTINE PERFORATION [None]
  - RENAL FAILURE [None]
  - RESPIRATORY FAILURE [None]
